FAERS Safety Report 7214501-4 (Version None)
Quarter: 2011Q1

REPORT INFORMATION
  Report Type: 
  Country: None (occurrence: None)
  Receive Date: 20110107
  Receipt Date: 20101228
  Transmission Date: 20110831
  Serious: Yes (Other)
  Sender: FDA-Public Use
  Company Number: US-RB-018171-11

PATIENT
  Age: 40 Year
  Sex: Female

DRUGS (1)
  1. MUCINEX DM [Suspect]
     Dosage: DOSING STARTED ON ??-DEC-2010. SHE TOOK ONE TABLET PER DOSE TWICE DAILY AND TOOK FIVE IN TOTAL.
     Route: 048

REACTIONS (3)
  - VISION BLURRED [None]
  - HYPERTENSION [None]
  - DIZZINESS [None]
